FAERS Safety Report 10721179 (Version 1)
Quarter: 2015Q1

REPORT INFORMATION
  Report Type: Spontaneous
  Country: US (occurrence: US)
  Receive Date: 20150119
  Receipt Date: 20150119
  Transmission Date: 20150721
  Serious: No
  Sender: FDA-Public Use
  Company Number: US-UNITED THERAPEUTICS-UNT-2014-008237

PATIENT
  Sex: Female
  Weight: 56.69 kg

DRUGS (3)
  1. ADCIRCA [Concomitant]
     Active Substance: TADALAFIL
     Indication: PRODUCT USED FOR UNKNOWN INDICATION
  2. OPSUMIT [Concomitant]
     Active Substance: MACITENTAN
     Indication: PRODUCT USED FOR UNKNOWN INDICATION
  3. ORENITRAM [Suspect]
     Active Substance: TREPROSTINIL
     Indication: PULMONARY HYPERTENSION
     Dosage: 1.5 MG, TID
     Route: 048
     Dates: start: 20140917

REACTIONS (11)
  - Vomiting [Unknown]
  - Nausea [Unknown]
  - Diarrhoea [Unknown]
  - Muscle spasms [Unknown]
  - Pain in extremity [Unknown]
  - Eye pain [Unknown]
  - Flushing [Unknown]
  - Dyspepsia [Unknown]
  - Dizziness [Unknown]
  - Headache [Unknown]
  - Pruritus [Unknown]

NARRATIVE: CASE EVENT DATE: 2014
